FAERS Safety Report 5066043-2 (Version None)
Quarter: 2006Q3

REPORT INFORMATION
  Report Type: 
  Country: None (occurrence: None)
  Receive Date: 20060731
  Receipt Date: 20050915
  Transmission Date: 20061208
  Serious: No
  Sender: FDA-Public Use
  Company Number: US-AMGEN-US150445

PATIENT

DRUGS (1)
  1. KINERET [Suspect]
     Indication: JUVENILE ARTHRITIS
     Dates: start: 20050101

REACTIONS (4)
  - CONTUSION [None]
  - INJURY [None]
  - PAIN [None]
  - URTICARIA [None]
